FAERS Safety Report 4388247-4 (Version None)
Quarter: 2004Q2

REPORT INFORMATION
  Report Type: 
  Country: None (occurrence: None)
  Receive Date: 20040625
  Receipt Date: 20040618
  Transmission Date: 20050107
  Serious: Yes (Death)
  Sender: FDA-Public Use
  Company Number: KII-2000-0003014

PATIENT
  Age: 66 Year
  Sex: Male

DRUGS (4)
  1. OXYCONTIN [Suspect]
     Dosage: 80 MG, Q8H
     Dates: start: 20000828
  2. OXYCONTIN [Suspect]
     Dosage: 80 MG, Q8H
     Dates: start: 20000901
  3. RITALIN [Concomitant]
  4. MEGACE [Concomitant]

REACTIONS (1)
  - END STAGE AIDS [None]
